FAERS Safety Report 5220601-0 (Version None)
Quarter: 2007Q1

REPORT INFORMATION
  Report Type: 
  Country: None (occurrence: None)
  Receive Date: 20070125
  Receipt Date: 20070125
  Transmission Date: 20070707
  Serious: Yes (Hospitalization)
  Sender: FDA-Public Use
  Company Number: None

PATIENT
  Sex: Female

DRUGS (2)
  1. REGULAR INSULIN [Suspect]
     Indication: DIABETES MELLITUS
     Dosage: 10 UNITS AM, 10 UNITS LUNCH, 5 UNITS PM PRIOR TO ADMISSION
  2. ZOCOR [Concomitant]

REACTIONS (1)
  - HYPOGLYCAEMIA [None]
